FAERS Safety Report 19371000 (Version 3)
Quarter: 2021Q4

REPORT INFORMATION
  Report Type: Report from Study
  Country: KR (occurrence: KR)
  Receive Date: 20210604
  Receipt Date: 20211115
  Transmission Date: 20220303
  Serious: Yes (Other)
  Sender: FDA-Public Use
  Company Number: KR-KYOWAKIRIN-2021AKK009093

PATIENT
  Age: 74 Year
  Sex: Female

DRUGS (49)
  1. FILGRASTIM [Suspect]
     Active Substance: FILGRASTIM
     Indication: Product used for unknown indication
     Dosage: 1 UNK QD
     Route: 065
     Dates: start: 20170327, end: 20170329
  2. RAMUCIRUMAB [Concomitant]
     Active Substance: RAMUCIRUMAB
     Indication: Product used for unknown indication
     Dosage: 1 UNK, QD
     Dates: end: 20170315
  3. RAMUCIRUMAB [Concomitant]
     Active Substance: RAMUCIRUMAB
     Dosage: 1 UNK, QD
     Dates: end: 20170405
  4. RAMUCIRUMAB [Concomitant]
     Active Substance: RAMUCIRUMAB
     Dosage: 1 UNK, QD
     Dates: end: 20170504
  5. AMLODIPINE [Concomitant]
     Active Substance: AMLODIPINE BESYLATE
     Indication: Product used for unknown indication
     Dosage: 5 MILLIGRAM, QD
     Dates: start: 2017
  6. BUTYLSCOPOLAMINE [Concomitant]
     Active Substance: BUTYLSCOPOLAMINE
     Indication: Product used for unknown indication
     Dosage: 1 UNK
     Dates: start: 20170327, end: 20170327
  7. CHLORHEXIDINE [Concomitant]
     Active Substance: CHLORHEXIDINE
     Indication: Product used for unknown indication
     Dosage: 100 UNK
     Dates: start: 20170327, end: 20170411
  8. CHLORPHENIRAMINE MALEATE [Concomitant]
     Active Substance: CHLORPHENIRAMINE MALEATE
     Indication: Product used for unknown indication
     Dosage: 4 MILLIGRAM, QD
     Dates: start: 20170315
  9. CHLORPHENIRAMINE MALEATE [Concomitant]
     Active Substance: CHLORPHENIRAMINE MALEATE
     Dosage: 4 MILLIGRAM, QD
     Dates: start: 20170322
  10. CHLORPHENIRAMINE MALEATE [Concomitant]
     Active Substance: CHLORPHENIRAMINE MALEATE
     Dosage: 4 MILLIGRAM, QD
     Dates: start: 20170405
  11. CHLORPHENIRAMINE MALEATE [Concomitant]
     Active Substance: CHLORPHENIRAMINE MALEATE
     Dosage: 4 MILLIGRAM, QD
     Dates: start: 20170504
  12. DEXAMETHASONE [Concomitant]
     Active Substance: DEXAMETHASONE
     Indication: Product used for unknown indication
     Dosage: 10 MILLIGRAM, QD
     Dates: end: 20170315
  13. DEXAMETHASONE [Concomitant]
     Active Substance: DEXAMETHASONE
     Dosage: 10 MILLIGRAM, QD
     Dates: end: 20170322
  14. DEXAMETHASONE [Concomitant]
     Active Substance: DEXAMETHASONE
     Dosage: 10 MILLIGRAM, QD
     Dates: end: 20170405
  15. DEXAMETHASONE [Concomitant]
     Active Substance: DEXAMETHASONE
     Dosage: 10 MILLIGRAM, QD
     Dates: end: 20170504
  16. DULOXETINE [Concomitant]
     Active Substance: DULOXETINE
     Indication: Product used for unknown indication
     Dosage: 1 UNK, QD
     Dates: start: 20170407
  17. FAMOTIDINE [Concomitant]
     Active Substance: FAMOTIDINE
     Indication: Product used for unknown indication
     Dosage: 1 UNK, QD
     Dates: start: 20170327, end: 20170327
  18. FAMOTIDINE [Concomitant]
     Active Substance: FAMOTIDINE
     Dosage: 20 MILLIGRAM, QD
     Dates: start: 20170315, end: 20170315
  19. FAMOTIDINE [Concomitant]
     Active Substance: FAMOTIDINE
     Dosage: 20 MILLIGRAM, QD
     Dates: start: 20170322, end: 20170322
  20. FAMOTIDINE [Concomitant]
     Active Substance: FAMOTIDINE
     Dosage: 20 MILLIGRAM, QD
     Dates: start: 20170405, end: 20170405
  21. FAMOTIDINE [Concomitant]
     Active Substance: FAMOTIDINE
     Dosage: 20 MILLIGRAM, QD
     Dates: start: 20170504, end: 20170504
  22. HYDROCORTISONE [Concomitant]
     Active Substance: HYDROCORTISONE
     Indication: Product used for unknown indication
     Dosage: 100 MILLIGRAM, QD
     Dates: end: 20170315
  23. HYDROCORTISONE [Concomitant]
     Active Substance: HYDROCORTISONE
     Dosage: 100 MILLIGRAM, QD
     Dates: end: 20170322
  24. HYDROCORTISONE [Concomitant]
     Active Substance: HYDROCORTISONE
     Dosage: 100 MILLIGRAM, QD
     Dates: end: 20170504
  25. INSULIN GLULISINE [Concomitant]
     Active Substance: INSULIN GLULISINE
     Indication: Product used for unknown indication
     Dosage: 14 UNK, QD
     Dates: start: 20170106
  26. KETOROLAC [Concomitant]
     Active Substance: KETOROLAC TROMETHAMINE
     Indication: Product used for unknown indication
     Dosage: 1 UNK
     Dates: start: 20170506, end: 20170506
  27. MEGESTROL [Concomitant]
     Active Substance: MEGESTROL
     Indication: Product used for unknown indication
     Dosage: 1 UNK, QD
     Dates: start: 20170315, end: 20170326
  28. MEGESTROL [Concomitant]
     Active Substance: MEGESTROL
     Dosage: 1 UNK, QD
     Dates: start: 20170412
  29. MELATONIN [Concomitant]
     Active Substance: MELATONIN
     Indication: Product used for unknown indication
     Dosage: 1 DOSAGE FORM, QD
     Dates: start: 20170330, end: 20170412
  30. MELATONIN [Concomitant]
     Active Substance: MELATONIN
     Dosage: 1 DOSAGE FORM
     Dates: start: 20170507, end: 20170511
  31. METFORMIN [Concomitant]
     Active Substance: METFORMIN HYDROCHLORIDE
     Indication: Product used for unknown indication
     Dosage: 2 DOSAGE FORM, QD
     Dates: start: 20170120
  32. MOSAPRIDE [Concomitant]
     Active Substance: MOSAPRIDE
     Indication: Product used for unknown indication
     Dosage: 15 MILLIGRAM, QD
     Dates: start: 20170315, end: 20170326
  33. NICARDIPINE [Concomitant]
     Active Substance: NICARDIPINE
     Indication: Product used for unknown indication
     Dosage: 1 UNK
     Dates: start: 20170405, end: 20170407
  34. NICARDIPINE [Concomitant]
     Active Substance: NICARDIPINE
     Dosage: 1 MILLIGRAM
     Dates: start: 20170507, end: 20170529
  35. NYSTATIN [Concomitant]
     Active Substance: NYSTATIN
     Indication: Product used for unknown indication
     Dosage: 50 UNK, QD
     Dates: start: 20170327, end: 20170331
  36. OLMESARTAN MEDOXOMIL/AMLODIPINE [Concomitant]
     Indication: Product used for unknown indication
     Dosage: 1 DOSAGE FORM, QD
     Dates: start: 20170411, end: 20170510
  37. PACLITAXEL [Concomitant]
     Active Substance: PACLITAXEL
     Indication: Product used for unknown indication
     Dosage: 80 UNK, QD
     Dates: end: 20170315
  38. PACLITAXEL [Concomitant]
     Active Substance: PACLITAXEL
     Dosage: 80 UNK, QD
     Dates: end: 20170322
  39. PACLITAXEL [Concomitant]
     Active Substance: PACLITAXEL
     Dosage: 60 UNK, QD
     Dates: end: 20170405
  40. PACLITAXEL [Concomitant]
     Active Substance: PACLITAXEL
     Dosage: 60 UNK, QD
     Dates: end: 20170504
  41. ACETAMINOPHEN [Concomitant]
     Active Substance: ACETAMINOPHEN
     Indication: Product used for unknown indication
     Dosage: 3 DOSAGE FORM, QD
     Dates: start: 20170417, end: 20170421
  42. PIPERACILLIN [Concomitant]
     Active Substance: PIPERACILLIN
     Indication: Product used for unknown indication
     Dosage: 1 UNK, QD
     Dates: start: 20170327, end: 20170406
  43. POTASSIUM CHLORIDE [Concomitant]
     Active Substance: POTASSIUM CHLORIDE
     Indication: Product used for unknown indication
     Dosage: 1 UNK
     Dates: start: 20170330, end: 20170402
  44. PROPACETAMOL [Concomitant]
     Active Substance: PROPACETAMOL
     Indication: Product used for unknown indication
     Dosage: 1 UNK
     Dates: start: 20170328, end: 20170408
  45. SITAGLIPTIN [Concomitant]
     Active Substance: SITAGLIPTIN
     Indication: Product used for unknown indication
     Dosage: 1 DOSAGE FORM, QD
     Dates: start: 20170110
  46. TRAMADOL [Concomitant]
     Active Substance: TRAMADOL
     Indication: Product used for unknown indication
     Dosage: 1 UNK
     Dates: start: 20170404, end: 20170408
  47. ACETAMINOPHEN\TRAMADOL [Concomitant]
     Active Substance: ACETAMINOPHEN\TRAMADOL
     Indication: Product used for unknown indication
     Dosage: 2 DOSAGE FORM, QD
     Dates: start: 20170315, end: 20170326
  48. ACETAMINOPHEN\TRAMADOL [Concomitant]
     Active Substance: ACETAMINOPHEN\TRAMADOL
     Dosage: 3 DOSAGE FORM, QD
     Dates: start: 20170426, end: 20170511
  49. VALSARTAN [Concomitant]
     Active Substance: VALSARTAN
     Indication: Product used for unknown indication
     Dosage: 1 DOSAGE FORM, QD
     Dates: start: 20170329

REACTIONS (19)
  - Hypokalaemia [Recovered/Resolved]
  - Neuropathy peripheral [Recovered/Resolved]
  - Multiple fractures [Not Recovered/Not Resolved]
  - Aphthous ulcer [Recovering/Resolving]
  - Diarrhoea [Recovered/Resolved]
  - Decreased appetite [Recovered/Resolved]
  - Asthenia [Recovered/Resolved]
  - Somnolence [Recovered/Resolved]
  - Somnolence [Recovered/Resolved]
  - Sinus tachycardia [Recovered/Resolved]
  - Dyspepsia [Recovered/Resolved]
  - Hyponatraemia [Recovered/Resolved]
  - Neutrophil count decreased [Recovered/Resolved]
  - Decubitus ulcer [Recovered/Resolved]
  - Somnolence [Recovered/Resolved]
  - Decreased appetite [Recovered/Resolved]
  - Pain in extremity [Recovered/Resolved]
  - Pain in extremity [Recovered/Resolved]
  - Asthenia [Recovered/Resolved]

NARRATIVE: CASE EVENT DATE: 20170324
